FAERS Safety Report 11753159 (Version 1)
Quarter: 2015Q4

REPORT INFORMATION
  Report Type: Spontaneous
  Country: GB (occurrence: GB)
  Receive Date: 20151119
  Receipt Date: 20151119
  Transmission Date: 20160304
  Serious: Yes (Death, Life-Threatening)
  Sender: FDA-Public Use
  Company Number: GB-NOVOPROD-470406

PATIENT
  Age: 37 Year
  Sex: Female
  Weight: 80 kg

DRUGS (2)
  1. NOVOSEVEN [Suspect]
     Active Substance: COAGULATION FACTOR VIIA RECOMBINANT HUMAN
     Indication: OFF LABEL USE
  2. NOVOSEVEN [Suspect]
     Active Substance: COAGULATION FACTOR VIIA RECOMBINANT HUMAN
     Indication: HAEMORRHAGE IN PREGNANCY
     Dosage: 5 MG
     Route: 042

REACTIONS (2)
  - Intestinal ischaemia [Recovered/Resolved]
  - Haemorrhage in pregnancy [Fatal]

NARRATIVE: CASE EVENT DATE: 20151030
